APPROVED DRUG PRODUCT: CITALOPRAM HYDROBROMIDE
Active Ingredient: CITALOPRAM HYDROBROMIDE
Strength: EQ 10MG BASE
Dosage Form/Route: TABLET;ORAL
Application: A205407 | Product #001
Applicant: JUBILANT GENERICS LTD
Approved: Dec 23, 2015 | RLD: No | RS: No | Type: DISCN